FAERS Safety Report 22168792 (Version 4)
Quarter: 2023Q2

REPORT INFORMATION
  Report Type: Spontaneous
  Country: US (occurrence: US)
  Receive Date: 20230403
  Receipt Date: 20230417
  Transmission Date: 20230722
  Serious: Yes (Life-Threatening, Hospitalization, Other)
  Sender: FDA-Public Use
  Company Number: US-009507513-2303USA010814

PATIENT
  Age: 63 Year
  Sex: Female
  Weight: 126.3 kg

DRUGS (2)
  1. KEYTRUDA [Suspect]
     Active Substance: PEMBROLIZUMAB
     Indication: Squamous endometrial carcinoma
     Dosage: 200 MILLIGRAM, Q3W
     Route: 042
     Dates: start: 20211101, end: 20230323
  2. LENVATINIB MESYLATE [Suspect]
     Active Substance: LENVATINIB MESYLATE
     Indication: Squamous endometrial carcinoma
     Dosage: UNK
     Route: 048
     Dates: start: 202111, end: 202111

REACTIONS (4)
  - Anaphylactic reaction [Recovered/Resolved]
  - Adverse event [Unknown]
  - Toxicity to various agents [Unknown]
  - Illness [Unknown]

NARRATIVE: CASE EVENT DATE: 20211101
